FAERS Safety Report 13888360 (Version 1)
Quarter: 2017Q3

REPORT INFORMATION
  Report Type: Report from Study
  Country: US (occurrence: US)
  Receive Date: 20170821
  Receipt Date: 20170821
  Transmission Date: 20171127
  Serious: Yes (Other)
  Sender: FDA-Public Use
  Company Number: US-BRISTOL-MYERS SQUIBB COMPANY-BMS-2017-073611

PATIENT
  Age: 7 Decade
  Sex: Female

DRUGS (1)
  1. ARIPIPRAZOLE. [Suspect]
     Active Substance: ARIPIPRAZOLE
     Indication: PRODUCT USED FOR UNKNOWN INDICATION
     Dosage: 30 MG, UNK
     Route: 065

REACTIONS (7)
  - Schizophrenia [Unknown]
  - Slow speech [Unknown]
  - Anxiety [Unknown]
  - Off label use [Unknown]
  - Slow response to stimuli [Unknown]
  - Disability [Unknown]
  - Aphasia [Unknown]
